FAERS Safety Report 5600340-4 (Version None)
Quarter: 2008Q1

REPORT INFORMATION
  Report Type: 
  Country: None (occurrence: None)
  Receive Date: 20080123
  Receipt Date: 20080114
  Transmission Date: 20080703
  Serious: Yes (Hospitalization, Disabling)
  Sender: FDA-Public Use
  Company Number: DE-BRISTOL-MYERS SQUIBB COMPANY-14049795

PATIENT
  Age: 77 Year
  Sex: Male

DRUGS (7)
  1. ERBITUX [Suspect]
     Indication: COLON CANCER
     Dosage: RECENT INFUSION ON 18-DEC-07 AND TEMPORARILY DISCONTINUED. TOTAL INFUSIONS 22.
     Route: 041
     Dates: start: 20070704, end: 20070704
  2. IRINOTECAN [Suspect]
     Indication: COLON CANCER
     Dosage: RECENT INFUSION ON 11-DEC-07 AND TEMPORARILY DISCONTINUED
     Dates: start: 20070704
  3. MARCUMAR [Concomitant]
  4. FENISTIL [Concomitant]
     Route: 042
  5. RANITIDINE [Concomitant]
  6. DEXAMETHASONE TAB [Concomitant]
  7. KEVATRIL [Concomitant]

REACTIONS (2)
  - ACNE [None]
  - LEUKOCYTOCLASTIC VASCULITIS [None]
